FAERS Safety Report 4330567-3 (Version None)
Quarter: 2004Q1

REPORT INFORMATION
  Report Type: 
  Country: None (occurrence: None)
  Receive Date: 20040329
  Receipt Date: 20040316
  Transmission Date: 20041129
  Serious: Yes (Hospitalization, Other)
  Sender: FDA-Public Use
  Company Number: HQWYE905205AUG03

PATIENT
  Age: 43 Year
  Sex: Female
  Weight: 70.45 kg

DRUGS (11)
  1. RAPAMUNE [Suspect]
     Indication: PROPHYLAXIS AGAINST TRANSPLANT REJECTION
     Dosage: 3 MG 1X PER 1 DAY, ORAL
     Route: 048
     Dates: start: 20030209
  2. CYCLOSPORINE [Concomitant]
  3. PREDNISONE [Concomitant]
  4. NORVASC [Concomitant]
  5. TOPROL-XL [Concomitant]
  6. LIPITOR [Concomitant]
  7. LANTUS [Concomitant]
  8. MAGNESIUM (MAGNESIUM) [Concomitant]
  9. CLONIDINE [Concomitant]
  10. PEPCID [Concomitant]
  11. CYTOVENE [Concomitant]

REACTIONS (4)
  - BETA HAEMOLYTIC STREPTOCOCCAL INFECTION [None]
  - BLOOD CREATININE INCREASED [None]
  - CYTOMEGALOVIRUS INFECTION [None]
  - PERINEPHRIC COLLECTION [None]
